FAERS Safety Report 8293524-0 (Version None)
Quarter: 2012Q2

REPORT INFORMATION
  Report Type: 
  Country: None (occurrence: None)
  Receive Date: 20120418
  Receipt Date: 20120320
  Transmission Date: 20120825
  Serious: Yes (Death)
  Sender: FDA-Public Use
  Company Number: US-BAXTER-2012BH005088

PATIENT
  Sex: Male

DRUGS (5)
  1. DIANEAL LOW CALCIUM W/ DEXTROSE 1.5% [Suspect]
     Route: 033
     Dates: end: 20120208
  2. DIANEAL LOW CALCIUM W/ DEXTROSE 1.5% [Suspect]
  3. DIANEAL [Suspect]
  4. DIANEAL [Suspect]
     Route: 033
     Dates: end: 20120208
  5. DIANEAL [Suspect]

REACTIONS (1)
  - CARDIAC DISORDER [None]
